FAERS Safety Report 21374597 (Version 2)
Quarter: 2022Q4

REPORT INFORMATION
  Report Type: Spontaneous
  Country: US (occurrence: US)
  Receive Date: 20220926
  Receipt Date: 20221013
  Transmission Date: 20230113
  Serious: No
  Sender: FDA-Public Use
  Company Number: US-BRISTOL-MYERS SQUIBB COMPANY-2022-106571

PATIENT
  Age: 45 Year
  Sex: Female
  Weight: 79.6 kg

DRUGS (1)
  1. REVLIMID [Suspect]
     Active Substance: LENALIDOMIDE
     Indication: Plasma cell myeloma
     Dosage: 10 MG DIALY FOR 21 DAYS, THEN 7 DAYS OFF
     Route: 048
     Dates: start: 2020

REACTIONS (1)
  - Human chorionic gonadotropin increased [Unknown]
